FAERS Safety Report 25050270 (Version 1)
Quarter: 2025Q1

REPORT INFORMATION
  Report Type: Spontaneous
  Country: US (occurrence: US)
  Receive Date: 20250307
  Receipt Date: 20250307
  Transmission Date: 20250409
  Serious: No
  Sender: SAMSUNG BIOEPIS
  Company Number: US-SAMSUNG BIOEPIS-SB-2024-25339

PATIENT
  Age: 29 Year
  Sex: Male

DRUGS (1)
  1. HADLIMA [Suspect]
     Active Substance: ADALIMUMAB-BWWD
     Indication: Crohn^s disease
     Route: 058

REACTIONS (1)
  - Injection site pain [Unknown]
